FAERS Safety Report 8736706 (Version 2)
Quarter: 2012Q4

REPORT INFORMATION
  Report Type: 
  Country: US (occurrence: US)
  Receive Date: 20120822
  Receipt Date: 20121025
  Transmission Date: 20130627
  Serious: Yes (Hospitalization)
  Sender: FDA-Public Use
  Company Number: US-BAYER-2012-084563

PATIENT
  Age: 29 Year
  Sex: Female
  Weight: 53.52 kg

DRUGS (10)
  1. YASMIN [Suspect]
     Indication: CONTRACEPTION
     Dosage: UNK
     Dates: start: 201109, end: 201201
  2. OCELLA [Suspect]
     Indication: CONTRACEPTION
     Dosage: UNK
     Dates: start: 201108
  3. AZITHROMYCIN [Concomitant]
     Dosage: 250 mg, QD
     Dates: start: 20111020, end: 20111025
  4. CARDEC [Concomitant]
     Dosage: UNK
     Dates: start: 20111020, end: 20111103
  5. FERROUS SULFATE [Concomitant]
     Dosage: 325 (65 FE BID
  6. IBUPROFEN [Concomitant]
     Indication: MUSCLE CRAMPS
     Dosage: 2 pills per day PRN
  7. ZYRTEC [Concomitant]
     Dosage: .5 mg, QD
  8. ASPIRIN [Concomitant]
  9. TYLENOL WITH CODEINE [Concomitant]
  10. IRON [Concomitant]

REACTIONS (1)
  - Thrombophlebitis superficial [None]
